FAERS Safety Report 9829829 (Version 2)
Quarter: 2014Q1

REPORT INFORMATION
  Report Type: Report from Study
  Country: FR (occurrence: FR)
  Receive Date: 20140120
  Receipt Date: 20140122
  Transmission Date: 20141002
  Serious: Yes (Death, Other)
  Sender: FDA-Public Use
  Company Number: FR-ROCHE-1333561

PATIENT
  Sex: 0

DRUGS (8)
  1. PEG-INTERFERON ALFA 2A [Suspect]
     Indication: HIV INFECTION
     Route: 065
  2. PEG-INTERFERON ALFA 2A [Suspect]
     Indication: HEPATITIS C
  3. RIBAVIRIN [Suspect]
     Indication: HIV INFECTION
     Route: 065
  4. RIBAVIRIN [Suspect]
     Indication: HEPATITIS C
  5. TELAPREVIR [Suspect]
     Indication: HIV INFECTION
     Route: 065
  6. TELAPREVIR [Suspect]
     Indication: HEPATITIS C
  7. BOCEPREVIR [Suspect]
     Indication: HIV INFECTION
     Route: 065
  8. BOCEPREVIR [Suspect]
     Indication: HEPATITIS C

REACTIONS (3)
  - Hepatic failure [Fatal]
  - Anaemia [Unknown]
  - Infection [Unknown]
